FAERS Safety Report 19082305 (Version 2)
Quarter: 2021Q2

REPORT INFORMATION
  Report Type: Spontaneous
  Country: NL (occurrence: NL)
  Receive Date: 20210401
  Receipt Date: 20210409
  Transmission Date: 20210717
  Serious: Yes (Hospitalization)
  Sender: FDA-Public Use
  Company Number: NL-TEVA-2021-NL-1895854

PATIENT
  Age: 48 Year
  Sex: Male

DRUGS (6)
  1. ENALAPRIL TABLET  5MG / BRAND NAME NOT SPECIFIED [Suspect]
     Active Substance: ENALAPRIL
     Indication: HYPERTENSION
     Dosage: 1 DOSAGE FORMS DAILY; THERAPY END DATE ASKU
     Dates: start: 20210312
  2. APIXABAN TABLET 5MG / ELIQUIS TABLET FILMOMHULD 5MG [Concomitant]
     Dosage: THERAPY START DATE ASKU, THERAPY END DATE ASKU, 5 MG (MILLIGRAM)
  3. ATORVASTATINE TABLET 40MG / BRAND NAME NOT SPECIFIED [Concomitant]
     Dosage: THERAPY START DATE ASKU, THERAPY END DATE ASKU, 40 MG (MILLIGRAM)
  4. PANTOPRAZOL TABLET MSR 40MG / BRAND NAME NOT SPECIFIED [Concomitant]
     Active Substance: PANTOPRAZOLE
     Dosage: THERAPY START DATE ASKU, THERAPY END DATE ASKU, 40 MG (MILLIGRAM)
  5. SOTALOL TABLET  80MG / BRAND NAME NOT SPECIFIED [Concomitant]
     Dosage: THERAPY START DATE ASKU, THERAPY END DATE ASKU, 80 MG (MILLIGRAM)
  6. CLOPIDOGREL TABLET   75MG / GREPID TABLET FILMOMHULD 75MG [Concomitant]
     Dosage: THERAPY START DATE ASKU, THERAPY END DATE ASKU, 75 MG (MILLIGRAM)

REACTIONS (5)
  - Headache [Recovering/Resolving]
  - Syncope [Recovering/Resolving]
  - Seizure [Recovering/Resolving]
  - Foaming at mouth [Recovering/Resolving]
  - Hypertension [Recovering/Resolving]

NARRATIVE: CASE EVENT DATE: 20210312
